FAERS Safety Report 13871403 (Version 1)
Quarter: 2017Q3

REPORT INFORMATION
  Report Type: Spontaneous
  Country: ES (occurrence: ES)
  Receive Date: 20170816
  Receipt Date: 20170816
  Transmission Date: 20171127
  Serious: Yes (Other)
  Sender: FDA-Public Use
  Company Number: ES-BAYER-2017-150933

PATIENT
  Age: 65 Year
  Sex: Male
  Weight: 85 kg

DRUGS (1)
  1. ADIRO 100 MG [Suspect]
     Active Substance: ASPIRIN
     Dosage: UNK UNK, QD
     Route: 048
     Dates: start: 20170405, end: 201706

REACTIONS (1)
  - Respiratory distress [Recovered/Resolved]

NARRATIVE: CASE EVENT DATE: 201704
